FAERS Safety Report 15766669 (Version 1)
Quarter: 2018Q4

REPORT INFORMATION
  Report Type: Spontaneous
  Country: US (occurrence: US)
  Receive Date: 20181207
  Receipt Date: 20181207
  Transmission Date: 20190205
  Serious: No
  Sender: FDA-Public Use
  Company Number: None

PATIENT
  Age: 69 Year
  Sex: Male

DRUGS (1)
  1. DALFAMPRIDINE  10MG ER [Suspect]
     Active Substance: DALFAMPRIDINE
     Indication: MULTIPLE SCLEROSIS
     Dates: start: 201807

REACTIONS (4)
  - Product substitution issue [None]
  - Diarrhoea [None]
  - Adverse drug reaction [None]
  - Nausea [None]

NARRATIVE: CASE EVENT DATE: 20181206
